FAERS Safety Report 5563515-9 (Version None)
Quarter: 2007Q4

REPORT INFORMATION
  Report Type: 
  Country: None (occurrence: None)
  Receive Date: 20071217
  Receipt Date: 20070531
  Transmission Date: 20080405
  Serious: No
  Sender: FDA-Public Use
  Company Number: US-ASTRAZENECA-2007UW13246

PATIENT
  Age: 56 Year
  Sex: Female
  Weight: 90.7 kg

DRUGS (8)
  1. CRESTOR [Suspect]
     Indication: HYPERCHOLESTEROLAEMIA
     Route: 048
     Dates: start: 20050101
  2. METOPROLOL [Concomitant]
     Route: 048
  3. ALTACE [Concomitant]
  4. TEFFALON [Concomitant]
  5. LANTUS [Concomitant]
  6. HUMALOG [Concomitant]
  7. PLAVIX [Concomitant]
  8. SERTRALINE [Concomitant]

REACTIONS (3)
  - COUGH [None]
  - MUSCULOSKELETAL STIFFNESS [None]
  - PAIN IN EXTREMITY [None]
